FAERS Safety Report 7988498-3 (Version None)
Quarter: 2011Q4

REPORT INFORMATION
  Report Type: 
  Country: None (occurrence: None)
  Receive Date: 20111216
  Receipt Date: 20111128
  Transmission Date: 20120403
  Serious: Yes (Other)
  Sender: FDA-Public Use
  Company Number: JP-AMGEN-JPNSP2011053134

PATIENT
  Age: 76 Year
  Sex: Female

DRUGS (3)
  1. ANABOLIC STEROIDS AND PREPARATIONS [Concomitant]
     Dosage: UNCERTAINTY
     Route: 065
  2. ROMIPLATE [Suspect]
     Indication: IDIOPATHIC THROMBOCYTOPENIC PURPURA
     Dosage: UNK UNK, ONE TIME DOSE
     Route: 058
     Dates: start: 20110728, end: 20110922
  3. ANABOLIC STEROIDS [Concomitant]
     Dosage: UNCERTAINTY
     Route: 065

REACTIONS (1)
  - ARTERIOSCLEROSIS OBLITERANS [None]
